FAERS Safety Report 6786086-8 (Version None)
Quarter: 2010Q2

REPORT INFORMATION
  Report Type: 
  Country: None (occurrence: None)
  Receive Date: 20100623
  Receipt Date: 20100614
  Transmission Date: 20101027
  Serious: Yes (Other)
  Sender: FDA-Public Use
  Company Number: PHHY2010NL19925

PATIENT
  Sex: Female
  Weight: 57 kg

DRUGS (6)
  1. EXELON [Suspect]
     Indication: DEMENTIA ALZHEIMER'S TYPE
     Dosage: 4.6MG, UNK
     Route: 062
     Dates: start: 20080705
  2. EXELON [Suspect]
     Dosage: 9.5MG,UNK
     Route: 062
     Dates: end: 20100324
  3. PANTOZOL [Concomitant]
     Dosage: UNK
     Dates: start: 20080705
  4. APROVEL [Concomitant]
     Dosage: UNK
     Dates: start: 20080705
  5. ASCAL [Concomitant]
  6. CALCIUM CARBONATE [Concomitant]
     Dosage: 500 MG/400 IU

REACTIONS (6)
  - APPLICATION SITE REACTION [None]
  - BLOOD PRESSURE INCREASED [None]
  - DIZZINESS [None]
  - HYPERSENSITIVITY [None]
  - MALAISE [None]
  - PALLOR [None]
